FAERS Safety Report 6631184-2 (Version None)
Quarter: 2010Q1

REPORT INFORMATION
  Report Type: 
  Country: None (occurrence: None)
  Receive Date: 20100309
  Receipt Date: 20100223
  Transmission Date: 20100710
  Serious: Yes (Hospitalization)
  Sender: FDA-Public Use
  Company Number: 1000012280

PATIENT
  Age: 56 Year
  Sex: Female

DRUGS (7)
  1. CITALOPRAM HYDROBROMIDE [Suspect]
     Indication: MAJOR DEPRESSION
     Dosage: 20 MG, 20 MG, 1 IN 1 D),ORAL; 40 MG (40 MG, 1 IN 1 D), ORAL
     Route: 048
     Dates: start: 20091201, end: 20091209
  2. CITALOPRAM HYDROBROMIDE [Suspect]
     Indication: MAJOR DEPRESSION
     Dosage: 20 MG, 20 MG, 1 IN 1 D),ORAL; 40 MG (40 MG, 1 IN 1 D), ORAL
     Route: 048
     Dates: start: 20091210, end: 20091218
  3. CITALOPRAM HYDROBROMIDE [Suspect]
     Indication: MAJOR DEPRESSION
     Dosage: 60 MG (60 MG, 1 IN 1 D), ORAL
     Route: 048
     Dates: start: 20091219, end: 20100104
  4. RIVOTRIL       (DROPS(FOR ORAL USE)) [Suspect]
     Dosage: ORAL
     Route: 048
     Dates: end: 20100104
  5. RIVOTRIL       (DROPS(FOR ORAL USE)) [Suspect]
     Dosage: 30-50 DROPS DAILY (1 IN 1 D), ORAL
     Route: 048
     Dates: start: 20100106
  6. LOXAPAC [Concomitant]
  7. FORLAX [Concomitant]

REACTIONS (6)
  - ABNORMAL BEHAVIOUR [None]
  - ALTERED STATE OF CONSCIOUSNESS [None]
  - HYPOGLYCAEMIA [None]
  - HYPONATRAEMIA [None]
  - HYPOPHAGIA [None]
  - TORSADE DE POINTES [None]
